FAERS Safety Report 18855411 (Version 1)
Quarter: 2021Q1

REPORT INFORMATION
  Report Type: Spontaneous
  Country: US (occurrence: US)
  Receive Date: 20210205
  Receipt Date: 20210205
  Transmission Date: 20210420
  Serious: No
  Sender: FDA-Public Use
  Company Number: US-PFIZER INC-2021087165

PATIENT
  Sex: Female

DRUGS (3)
  1. NEOMYCIN SULFATE. [Suspect]
     Active Substance: NEOMYCIN SULFATE
     Dosage: UNK
  2. VITAMINE D [Concomitant]
     Active Substance: CHOLECALCIFEROL
     Dosage: UNK
  3. POLYMYXIN [Suspect]
     Active Substance: POLYMYXIN
     Dosage: UNK

REACTIONS (3)
  - Drug hypersensitivity [Unknown]
  - Eye swelling [Unknown]
  - Pharyngeal swelling [Unknown]
